FAERS Safety Report 19086437 (Version 1)
Quarter: 2021Q2

REPORT INFORMATION
  Report Type: Spontaneous
  Country: US (occurrence: US)
  Receive Date: 20210401
  Receipt Date: 20210401
  Transmission Date: 20210717
  Serious: Yes (Hospitalization)
  Sender: FDA-Public Use
  Company Number: None

PATIENT
  Age: 20 Year
  Sex: Male

DRUGS (7)
  1. HUMIRA [Suspect]
     Active Substance: ADALIMUMAB
     Indication: PSORIASIS
     Dosage: ?          OTHER FREQUENCY:EVERY 7 DAYS;?
     Route: 058
     Dates: start: 20200523
  2. DRISDOL, ENTOCOERT ENTYVIO, FEROUSOL, FLOVENT HFA, IBUPROFFEN, LEVOCET [Concomitant]
  3. ALIGN, [Concomitant]
  4. ACETAMINE, [Concomitant]
  5. ALBUTEROL, [Concomitant]
  6. ALLERGRA, [Concomitant]
  7. AUVI, [Concomitant]

REACTIONS (1)
  - Feeling abnormal [None]

NARRATIVE: CASE EVENT DATE: 20210327
